FAERS Safety Report 6946325-7 (Version None)
Quarter: 2010Q3

REPORT INFORMATION
  Report Type: 
  Country: None (occurrence: None)
  Receive Date: 20100824
  Receipt Date: 20100811
  Transmission Date: 20110219
  Serious: Yes (Hospitalization, Other)
  Sender: FDA-Public Use
  Company Number: 2010AC000489

PATIENT
  Age: 58 Year
  Sex: Male

DRUGS (17)
  1. DIGOXIN [Suspect]
     Dosage: 0.25 MG, QD, PO
     Route: 048
     Dates: start: 20070201, end: 20070301
  2. DIGOXIN [Suspect]
     Dosage: MG,PO
     Route: 048
     Dates: start: 20070301
  3. TIKOSYN [Concomitant]
  4. STOTALOL [Concomitant]
  5. AMIODARONE [Concomitant]
  6. COREG [Concomitant]
  7. COUMADIN [Concomitant]
  8. LASIX [Concomitant]
  9. LISINOPRIL [Concomitant]
  10. ALDACTONE [Concomitant]
  11. GLYBURIDE [Concomitant]
  12. ACTOS [Concomitant]
  13. GEMFIBROZIL [Concomitant]
  14. ZOCOR [Concomitant]
  15. METFORMIN [Concomitant]
  16. ASPIRIN [Concomitant]
  17. LEXAPRO [Concomitant]

REACTIONS (33)
  - ALVEOLITIS [None]
  - ANAEMIA [None]
  - ASTHENIA [None]
  - ATRIAL FIBRILLATION [None]
  - ATRIOVENTRICULAR BLOCK COMPLETE [None]
  - CARDIAC FAILURE CONGESTIVE [None]
  - CARDIOACTIVE DRUG LEVEL INCREASED [None]
  - CARDIOMEGALY [None]
  - CONDITION AGGRAVATED [None]
  - COUGH [None]
  - DIZZINESS [None]
  - DRUG INTOLERANCE [None]
  - ELECTROCARDIOGRAM ST SEGMENT ABNORMAL [None]
  - ELECTROCARDIOGRAM T WAVE ABNORMAL [None]
  - FATIGUE [None]
  - HEART RATE IRREGULAR [None]
  - HILAR LYMPHADENOPATHY [None]
  - LEFT ATRIAL DILATATION [None]
  - LEFT VENTRICULAR DYSFUNCTION [None]
  - LETHARGY [None]
  - LYMPHADENOPATHY MEDIASTINAL [None]
  - MYOCARDIAL INFARCTION [None]
  - OEDEMA PERIPHERAL [None]
  - ORTHOSTATIC HYPOTENSION [None]
  - OXYGEN SATURATION DECREASED [None]
  - RASH [None]
  - RESPIRATION ABNORMAL [None]
  - SKIN DISCOLOURATION [None]
  - SLEEP APNOEA SYNDROME [None]
  - SUPRAVENTRICULAR EXTRASYSTOLES [None]
  - TREATMENT FAILURE [None]
  - VASCULAR GRAFT OCCLUSION [None]
  - VENTRICULAR HYPOKINESIA [None]
